FAERS Safety Report 9753752 (Version 2)
Quarter: 2015Q3

REPORT INFORMATION
  Report Type: Spontaneous
  Country: US (occurrence: US)
  Receive Date: 20131213
  Receipt Date: 20150805
  Transmission Date: 20151125
  Serious: No
  Sender: FDA-Public Use
  Company Number: US-GILEAD-2010-0026738

PATIENT
  Age: 66 Year
  Sex: Female

DRUGS (12)
  1. LETAIRIS [Suspect]
     Active Substance: AMBRISENTAN
     Indication: PULMONARY ARTERIAL HYPERTENSION
     Route: 048
     Dates: start: 20100111
  2. PRILOSEC OTC [Concomitant]
     Active Substance: OMEPRAZOLE MAGNESIUM
  3. VITAMIN C [Concomitant]
     Active Substance: ASCORBIC ACID
  4. ZEBETA [Concomitant]
     Active Substance: BISOPROLOL FUMARATE
  5. MULTIVITAMIN [Concomitant]
     Active Substance: VITAMINS
  6. FEMARA [Concomitant]
     Active Substance: LETROZOLE
  7. NAPROXEN. [Concomitant]
     Active Substance: NAPROXEN
  8. SINGULAIR [Concomitant]
     Active Substance: MONTELUKAST SODIUM
  9. ATIVAN [Concomitant]
     Active Substance: LORAZEPAM
  10. ZOLOFT [Concomitant]
     Active Substance: SERTRALINE HYDROCHLORIDE
  11. LIPITOR [Concomitant]
     Active Substance: ATORVASTATIN CALCIUM
  12. ZETIA [Concomitant]
     Active Substance: EZETIMIBE

REACTIONS (2)
  - Dry mouth [Unknown]
  - Chapped lips [Unknown]
